FAERS Safety Report 13855887 (Version 4)
Quarter: 2017Q3

REPORT INFORMATION
  Report Type: Spontaneous
  Country: US (occurrence: US)
  Receive Date: 20170810
  Receipt Date: 20170821
  Transmission Date: 20171127
  Serious: Yes (Hospitalization)
  Sender: FDA-Public Use
  Company Number: US-MISSION PHARMACAL COMPANY-2024464

PATIENT
  Age: 26 Year
  Sex: Female

DRUGS (4)
  1. AUGMENTIN [Concomitant]
     Active Substance: AMOXICILLIN\CLAVULANATE POTASSIUM
     Route: 065
  2. THIOLA [Suspect]
     Active Substance: TIOPRONIN
     Indication: URETEROLITHIASIS
     Route: 065
     Dates: start: 20140823
  3. ALBUTEROL. [Concomitant]
     Active Substance: ALBUTEROL
     Route: 065
  4. STEROIDS (UNSPECIFIED) [Concomitant]
     Route: 065

REACTIONS (17)
  - Dehydration [Unknown]
  - Nausea [Unknown]
  - Dyspnoea [Unknown]
  - Dizziness [None]
  - Malaise [None]
  - Pain [None]
  - Gastrointestinal disorder [None]
  - Panic attack [Unknown]
  - Pneumonia [Recovering/Resolving]
  - Flank pain [Unknown]
  - Tremor [Unknown]
  - Vomiting [Unknown]
  - Chest pain [Not Recovered/Not Resolved]
  - Asthenia [Not Recovered/Not Resolved]
  - Fall [None]
  - Heart rate increased [Unknown]
  - Pyrexia [Recovered/Resolved]
